FAERS Safety Report 8141694-7 (Version None)
Quarter: 2012Q1

REPORT INFORMATION
  Report Type: 
  Country: None (occurrence: None)
  Receive Date: 20120216
  Receipt Date: 20120210
  Transmission Date: 20120608
  Serious: Yes (Hospitalization)
  Sender: FDA-Public Use
  Company Number: PHEH2012US003399

PATIENT
  Sex: Female
  Weight: 58 kg

DRUGS (3)
  1. DILANTIN [Concomitant]
  2. EXJADE [Suspect]
     Indication: SICKLE CELL ANAEMIA
     Dosage: 2 DF, QD
     Route: 048
     Dates: start: 20120119
  3. EXJADE [Suspect]
     Indication: PROPHYLAXIS

REACTIONS (3)
  - CONVULSION [None]
  - CONSTIPATION [None]
  - PNEUMONIA [None]
